FAERS Safety Report 18727455 (Version 3)
Quarter: 2021Q1

REPORT INFORMATION
  Report Type: Spontaneous
  Country: US (occurrence: US)
  Receive Date: 20210111
  Receipt Date: 20210305
  Transmission Date: 20210419
  Serious: Yes (Hospitalization, Other)
  Sender: FDA-Public Use
  Company Number: US-ELI_LILLY_AND_COMPANY-US202101001481

PATIENT
  Age: 92 Year
  Sex: Female
  Weight: 99.7 kg

DRUGS (4)
  1. BARICITINIB. [Suspect]
     Active Substance: BARICITINIB
     Indication: COVID-19 PNEUMONIA
     Dosage: 2 MG, DAILY
     Route: 048
     Dates: start: 20201218, end: 20201228
  2. REMDESIVIR. [Concomitant]
     Active Substance: REMDESIVIR
     Indication: COVID-19 PNEUMONIA
     Dosage: UNK UNK, UNKNOWN
     Route: 065
     Dates: start: 20201216, end: 20201220
  3. HEPARIN [Concomitant]
     Active Substance: HEPARIN SODIUM
     Indication: PRODUCT USED FOR UNKNOWN INDICATION
     Dosage: 7500 UNITS, TID
     Route: 058
  4. METHYLPREDNISOLONE. [Concomitant]
     Active Substance: METHYLPREDNISOLONE
     Indication: COVID-19 PNEUMONIA
     Dosage: UNK UNK, UNKNOWN
     Route: 065
     Dates: start: 20201217, end: 20201230

REACTIONS (3)
  - Leukocytosis [Recovered/Resolved]
  - Retroperitoneal haematoma [Recovered/Resolved]
  - Urinary tract infection [Recovered/Resolved]

NARRATIVE: CASE EVENT DATE: 20201222
